FAERS Safety Report 9769301 (Version 2)
Quarter: 2013Q4

REPORT INFORMATION
  Report Type: Report from Study
  Country: US (occurrence: US)
  Receive Date: 20131218
  Receipt Date: 20131224
  Transmission Date: 20140711
  Serious: Yes (Hospitalization)
  Sender: FDA-Public Use
  Company Number: PHHO2013US016079

PATIENT
  Age: 66 Year
  Sex: Female
  Weight: 51.5 kg

DRUGS (12)
  1. AFINITOR [Suspect]
     Indication: BREAST CANCER METASTATIC
     Dosage: 10 MG, QD
     Route: 048
     Dates: start: 20131114, end: 20131210
  2. AFINITOR [Suspect]
     Route: 048
     Dates: start: 20131214
  3. CGS 20267 [Suspect]
     Indication: BREAST CANCER METASTATIC
     Dosage: 2.5 MG, QD
     Route: 048
     Dates: start: 20131112
  4. ALPRAZOLAM [Concomitant]
     Indication: ANXIETY
     Dosage: 1 DF, TID
     Route: 048
     Dates: start: 20131029
  5. ACETAMINOPHEN [Concomitant]
     Dosage: 500 MG, TID
     Dates: start: 20131029
  6. MORPHINE [Concomitant]
     Dosage: 1 DF, Q8H
     Route: 048
     Dates: start: 20131029
  7. ONDANSETRON [Concomitant]
     Indication: NAUSEA
     Dosage: 1 DF, PRN
     Route: 048
     Dates: start: 20131112
  8. ONDANSETRON [Concomitant]
     Indication: VOMITING
  9. OXYCODONE [Concomitant]
     Dosage: 1 DF, Q6H
     Route: 048
     Dates: start: 20131029
  10. POLYETHYLENE GLYCOL [Concomitant]
     Dosage: 17 G, QD
     Route: 048
     Dates: start: 20131114
  11. RANITIDINE [Concomitant]
     Dosage: 150 MG, UNK
     Route: 048
     Dates: start: 20131029
  12. DEXAMETHASONE [Concomitant]
     Dosage: 2 TSP, TID
     Route: 048
     Dates: start: 20131119

REACTIONS (1)
  - Pleural effusion [Recovered/Resolved with Sequelae]
